FAERS Safety Report 14620672 (Version 1)
Quarter: 2018Q1

REPORT INFORMATION
  Report Type: Spontaneous
  Country: GB (occurrence: GB)
  Receive Date: 20180309
  Receipt Date: 20180309
  Transmission Date: 20180509
  Serious: Yes (Hospitalization)
  Sender: FDA-Public Use
  Company Number: GB-SA-2018SA051746

PATIENT
  Age: 77 Year
  Sex: Male
  Weight: 76.2 kg

DRUGS (17)
  1. BISOPROLOL [Concomitant]
     Active Substance: BISOPROLOL
  2. AMLODIPINE [Concomitant]
     Active Substance: AMLODIPINE BESYLATE
  3. SALBUTAMOL [Concomitant]
     Active Substance: ALBUTEROL
  4. TICAGRELOR. [Concomitant]
     Active Substance: TICAGRELOR
  5. ACETYLSALICYLIC ACID [Concomitant]
     Active Substance: ASPIRIN
  6. LEFLUNOMIDE. [Suspect]
     Active Substance: LEFLUNOMIDE
     Indication: ARTHRITIS
     Route: 048
     Dates: start: 20171025, end: 20171106
  7. BECLOMETASONE [Concomitant]
     Active Substance: BECLOMETHASONE DIPROPIONATE
  8. ATORVASTATIN [Concomitant]
     Active Substance: ATORVASTATIN
  9. NICORANDIL [Concomitant]
     Active Substance: NICORANDIL
  10. TAMSULOSIN [Concomitant]
     Active Substance: TAMSULOSIN
  11. ADCAL-D3 [Concomitant]
     Active Substance: CALCIUM CARBONATE\CHOLECALCIFEROL
  12. DIPROBASE [Concomitant]
     Active Substance: CHLOROCRESOL
  13. PARACETAMOL [Concomitant]
     Active Substance: ACETAMINOPHEN
  14. LANSOPRAZOLE. [Concomitant]
     Active Substance: LANSOPRAZOLE
  15. ALENDRONIC ACID [Concomitant]
     Active Substance: ALENDRONIC ACID
  16. CETIRIZINE DIHYDROCHLORIDE [Concomitant]
     Active Substance: CETIRIZINE HYDROCHLORIDE
  17. GLYCERYL TRINITRATE [Concomitant]
     Active Substance: NITROGLYCERIN

REACTIONS (1)
  - Swollen tongue [Recovered/Resolved]

NARRATIVE: CASE EVENT DATE: 20171105
